FAERS Safety Report 7898545-5 (Version None)
Quarter: 2011Q4

REPORT INFORMATION
  Report Type: 
  Country: None (occurrence: None)
  Receive Date: 20111107
  Receipt Date: 20111025
  Transmission Date: 20120403
  Serious: Yes (Hospitalization)
  Sender: FDA-Public Use
  Company Number: DE-CELGENEUS-062-50794-11093367

PATIENT
  Age: 79 Year
  Sex: Male
  Weight: 78 kg

DRUGS (6)
  1. PENICILLIN [Concomitant]
     Indication: ANTIBIOTIC THERAPY
     Dosage: 12 MILLIGRAM
     Route: 065
     Dates: start: 20110923, end: 20110926
  2. ETOPOSIDE [Suspect]
     Dosage: 207 MILLIGRAM
     Route: 041
     Dates: start: 20110913, end: 20110915
  3. TAZOBAC [Concomitant]
     Indication: ANTIBIOTIC THERAPY
     Dosage: 1.5 MILLIGRAM
     Route: 065
     Dates: start: 20110323, end: 20110801
  4. POSACONAZOLE [Concomitant]
     Dosage: 15 MILLIGRAM
     Route: 065
     Dates: start: 20110923, end: 20110926
  5. VIDAZA [Suspect]
     Dosage: 200 MILLIGRAM
     Route: 041
     Dates: start: 20110913, end: 20110917
  6. IDARUBICIN HCL [Suspect]
     Dosage: 24 MILLIGRAM
     Route: 041
     Dates: start: 20110913, end: 20110915

REACTIONS (1)
  - SEPSIS [None]
